FAERS Safety Report 6593253-5 (Version None)
Quarter: 2010Q1

REPORT INFORMATION
  Report Type: 
  Country: None (occurrence: None)
  Receive Date: 20100222
  Receipt Date: 20100208
  Transmission Date: 20100710
  Serious: Yes (Other)
  Sender: FDA-Public Use
  Company Number: GB-BAYER-GB-2007-007006

PATIENT
  Age: 49 Year
  Sex: Female

DRUGS (8)
  1. FLUDARA [Suspect]
     Indication: CHRONIC LYMPHOCYTIC LEUKAEMIA
     Dosage: 24 MG/M2, 6 CYCLES [DAILY DOSE: 24 MG/M2]
     Route: 048
  2. CYCLOPHOSPHAMIDE [Suspect]
     Indication: CHEMOTHERAPY
     Dosage: 150 MG/M2,4 CYCLES
  3. RITUXIMAB [Suspect]
     Dosage: 375 MG/M2, 5 CYCLES [DAILY DOSE: 375 MG/M2]
  4. CHLORAMBUCIL [Suspect]
     Indication: CHEMOTHERAPY
  5. DOXORUBICIN [Suspect]
     Indication: CHEMOTHERAPY
  6. PREDNISONE [Suspect]
     Indication: CHEMOTHERAPY
  7. VINCRISTINE [Suspect]
  8. VINCRISTINE [Concomitant]
     Indication: CHEMOTHERAPY MULTIPLE AGENTS SYSTEMIC

REACTIONS (1)
  - AUTOIMMUNE NEUTROPENIA [None]
